FAERS Safety Report 5845799-2 (Version None)
Quarter: 2008Q3

REPORT INFORMATION
  Report Type: 
  Country: None (occurrence: None)
  Receive Date: 20080814
  Receipt Date: 20080804
  Transmission Date: 20090109
  Serious: Yes (Other)
  Sender: FDA-Public Use
  Company Number: US-ELI_LILLY_AND_COMPANY-US200808002421

PATIENT
  Age: 48 Year
  Sex: Female

DRUGS (1)
  1. HUMALOG [Suspect]

REACTIONS (7)
  - ANXIETY [None]
  - DEPRESSION [None]
  - HYPERTENSION [None]
  - HYPOAESTHESIA [None]
  - MUSCLE SPASMS [None]
  - MYOCARDIAL INFARCTION [None]
  - RENAL FAILURE CHRONIC [None]
